FAERS Safety Report 14046263 (Version 5)
Quarter: 2018Q2

REPORT INFORMATION
  Report Type: Report from Study
  Country: CA (occurrence: CA)
  Receive Date: 20171005
  Receipt Date: 20180605
  Transmission Date: 20180711
  Serious: Yes (Other)
  Sender: FDA-Public Use
  Company Number: CA-ROCHE-2003342

PATIENT
  Sex: Female

DRUGS (5)
  1. ALECENSARO [Suspect]
     Active Substance: ALECTINIB
     Dosage: DOSE REDUCED TO TAKE 1 PILL IN THE MORNING AND 2 IN THE AFTERNOON
     Route: 048
  2. ALECENSARO [Suspect]
     Active Substance: ALECTINIB
     Dosage: DOSE MODIFIED TO TAKE 1 PILL IN THE MORNING AND 3 IN THE EVENING
     Route: 048
  3. CRIZOTINIB [Concomitant]
     Active Substance: CRIZOTINIB
  4. ALECENSARO [Suspect]
     Active Substance: ALECTINIB
     Indication: NON-SMALL CELL LUNG CANCER
     Dosage: THERAPY INTERRUPTED DUE TO EVENTS
     Route: 048
     Dates: start: 20170915
  5. ALECENSARO [Suspect]
     Active Substance: ALECTINIB
     Dosage: THERAPY RESTARTED AT HALF DOSE ON AN UNSPECIFIED DATE IN 2017?WAS TAKING 2 PILLS IN THE MORNING AND
     Route: 048

REACTIONS (7)
  - Pollakiuria [Recovered/Resolved]
  - Nausea [Recovered/Resolved]
  - Movement disorder [Recovered/Resolved]
  - Arthropathy [Recovered/Resolved]
  - Choking [Recovering/Resolving]
  - Nausea [Recovering/Resolving]
  - Fluid retention [Recovered/Resolved]
